FAERS Safety Report 21101078 (Version 1)
Quarter: 2022Q3

REPORT INFORMATION
  Report Type: Spontaneous
  Country: FR (occurrence: FR)
  Receive Date: 20220719
  Receipt Date: 20220719
  Transmission Date: 20221027
  Serious: Yes (Hospitalization, Other)
  Sender: FDA-Public Use
  Company Number: FR-DENTSPLY-2022SCDP000188

PATIENT
  Age: 37 Year
  Sex: Female

DRUGS (2)
  1. EPINEPHRINE BITARTRATE\LIDOCAINE HYDROCHLORIDE [Suspect]
     Active Substance: EPINEPHRINE BITARTRATE\LIDOCAINE HYDROCHLORIDE
     Indication: Anaesthesia
     Dosage: 60 MILLIGRAM TOTAL (DOSE TEST) XYLOCAINE 2 % (400 MG /20 ML) ADRENALINE, SOLUTION FOR INJECTION IN V
     Dates: start: 20220318, end: 20220318
  2. ROPIVACAINE HYDROCHLORIDE [Suspect]
     Active Substance: ROPIVACAINE HYDROCHLORIDE
     Indication: Anaesthesia
     Dosage: 15 MILLIGRAM TOTAL ANHYDROUS ROPIVACAINE HYDROCHLORIDE
     Dates: start: 20220318, end: 20220318

REACTIONS (6)
  - Anaesthetic complication vascular [Recovered/Resolved]
  - Decreased eye contact [Recovered/Resolved]
  - Dyspnoea [Recovered/Resolved]
  - Caesarean section [Recovered/Resolved]
  - Nervous system disorder [Recovered/Resolved]
  - Hypotension [Recovered/Resolved]

NARRATIVE: CASE EVENT DATE: 20220318
